FAERS Safety Report 8182094-3 (Version None)
Quarter: 2012Q1

REPORT INFORMATION
  Report Type: 
  Country: None (occurrence: None)
  Receive Date: 20120302
  Receipt Date: 20120223
  Transmission Date: 20120608
  Serious: Yes (Hospitalization, Other)
  Sender: FDA-Public Use
  Company Number: PHHY2012IE016142

PATIENT
  Sex: Male

DRUGS (3)
  1. ANGIOTENSIN II ANTAGONISTS [Concomitant]
     Dosage: UNK
  2. ACE INHIBITORS [Concomitant]
     Dosage: UNK
  3. RASILEZ [Suspect]
     Indication: HYPERTENSION

REACTIONS (3)
  - DIABETES MELLITUS INADEQUATE CONTROL [None]
  - HYPERTENSION [None]
  - RENAL FAILURE [None]
